FAERS Safety Report 8831739 (Version 1)
Quarter: 2012Q4

REPORT INFORMATION
  Report Type: Report from Study
  Country: JP (occurrence: JP)
  Receive Date: 20121009
  Receipt Date: 20121009
  Transmission Date: 20130627
  Serious: Yes (Other)
  Sender: FDA-Public Use
  Company Number: JP-VERTEX PHARMACEUTICAL INC.-2012-022350

PATIENT
  Age: 68 Year
  Sex: Male

DRUGS (12)
  1. VX-950 [Suspect]
     Indication: HEPATITIS C
     Dosage: 2250 mg, qd
     Route: 048
     Dates: start: 20120817, end: 20120820
  2. VX-950 [Suspect]
     Dosage: 1500 mg, qd
     Route: 048
     Dates: start: 20120821, end: 20120823
  3. VX-950 [Suspect]
     Dosage: 1000 mg, qd
     Route: 048
     Dates: start: 20120824
  4. RIBAVIRIN [Suspect]
     Indication: HEPATITIS C
     Dosage: 800 mg, qd
     Route: 048
     Dates: start: 20120817, end: 20120820
  5. RIBAVIRIN [Suspect]
     Dosage: 600 mg, qd
     Route: 048
     Dates: start: 20120821, end: 20120823
  6. RIBAVIRIN [Suspect]
     Dosage: 400 mg, qd
     Route: 048
     Dates: start: 20120824, end: 20120919
  7. RIBAVIRIN [Suspect]
     Dosage: 200 mg, qd
     Route: 048
     Dates: start: 20120920
  8. PEGINTERFERON ALFA-2B [Suspect]
     Indication: HEPATITIS C
     Dosage: 1.5 ?g/kg, UNK
     Route: 058
     Dates: start: 20120817, end: 20120817
  9. PEGINTERFERON ALFA-2B [Suspect]
     Dosage: 1 ?g/kg, UNK
     Route: 058
     Dates: start: 20120824
  10. EPADEL                             /01682401/ [Concomitant]
     Dosage: 1800 mg, qd
     Route: 048
  11. AMLODIPINE                         /00972402/ [Concomitant]
     Dosage: 5 mg, qd
     Route: 048
  12. PROMAC                             /01312301/ [Concomitant]
     Dosage: 150 mg, qd
     Route: 048

REACTIONS (1)
  - Renal impairment [Recovered/Resolved]
